FAERS Safety Report 22671786 (Version 2)
Quarter: 2024Q2

REPORT INFORMATION
  Report Type: Other
  Country: GB (occurrence: None)
  Receive Date: 20230705
  Receipt Date: 20240418
  Transmission Date: 20240715
  Serious: Yes (Hospitalization)
  Sender: FDA-Public Use
  Company Number: GB-ROCHE-3108312

PATIENT
  Sex: Female

DRUGS (10)
  1. TOCILIZUMAB [Suspect]
     Active Substance: TOCILIZUMAB
     Indication: Rheumatoid arthritis
     Route: 058
  2. TOCILIZUMAB [Suspect]
     Active Substance: TOCILIZUMAB
     Route: 058
     Dates: start: 2015
  3. TOCILIZUMAB [Suspect]
     Active Substance: TOCILIZUMAB
     Route: 058
     Dates: start: 2018
  4. TOCILIZUMAB [Suspect]
     Active Substance: TOCILIZUMAB
     Route: 058
     Dates: start: 2019
  5. FOLIC ACID [Concomitant]
     Active Substance: FOLIC ACID
     Dosage: SUNDAYS, TAKES 2 FOLIC ACIDS ON SATURDAYS,
  6. METHOTREXATE [Concomitant]
     Active Substance: METHOTREXATE
     Dosage: 4 ON SUNDAYS
  7. TOLTERODINE TARTRATE [Concomitant]
     Active Substance: TOLTERODINE TARTRATE
  8. ATORVASTATIN [Concomitant]
     Active Substance: ATORVASTATIN
  9. EDOXABAN TOSYLATE [Concomitant]
     Active Substance: EDOXABAN TOSYLATE
  10. BISOPROLOL [Concomitant]
     Active Substance: BISOPROLOL\BISOPROLOL FUMARATE

REACTIONS (10)
  - Cough [Unknown]
  - Heart rate increased [Unknown]
  - Thrombosis [Unknown]
  - COVID-19 [Unknown]
  - Nasopharyngitis [Unknown]
  - Productive cough [Unknown]
  - Infection [Unknown]
  - Viral infection [Unknown]
  - Nasopharyngitis [Unknown]
  - Liver disorder [Unknown]
